FAERS Safety Report 7505778-6 (Version None)
Quarter: 2011Q2

REPORT INFORMATION
  Report Type: 
  Country: None (occurrence: None)
  Receive Date: 20110526
  Receipt Date: 20110518
  Transmission Date: 20111010
  Serious: Yes (Other)
  Sender: FDA-Public Use
  Company Number: US-US-EMD SERONO, INC.-7060547

PATIENT
  Sex: Female
  Weight: 36 kg

DRUGS (1)
  1. REBIF [Suspect]
     Indication: MULTIPLE SCLEROSIS
     Route: 058
     Dates: start: 20110308

REACTIONS (3)
  - KIDNEY INFECTION [None]
  - INJECTION SITE PAIN [None]
  - SINUSITIS [None]
